FAERS Safety Report 9082400 (Version 1)
Quarter: 2013Q1

REPORT INFORMATION
  Report Type: Report from Study
  Country: US (occurrence: US)
  Receive Date: 20130130
  Receipt Date: 20130130
  Transmission Date: 20140127
  Serious: No
  Sender: FDA-Public Use
  Company Number: US-ABBOTT-12P-163-0966680-00

PATIENT
  Age: 42 Year
  Sex: Female

DRUGS (16)
  1. HUMIRA 40 MG/0.8 ML PEN [Suspect]
     Indication: RHEUMATOID ARTHRITIS
     Dates: start: 20120524
  2. HUMIRA 40 MG/0.8 ML PEN [Suspect]
  3. METHOTREXATE [Concomitant]
     Indication: RHEUMATOID ARTHRITIS
     Dosage: 27.5MG WEEKLY
  4. ZANTAC [Concomitant]
     Indication: GASTROOESOPHAGEAL REFLUX DISEASE
     Dosage: 150MG TWICE A DAY
  5. CELEBREX [Concomitant]
     Indication: INFLAMMATION
     Dosage: 200MG TWICE A DAY
  6. MIRALAX [Concomitant]
     Indication: CONSTIPATION
  7. MIRENA IUD [Concomitant]
     Indication: CONTRACEPTION
  8. FLONASE [Concomitant]
     Indication: PRODUCT USED FOR UNKNOWN INDICATION
  9. PATANOL [Concomitant]
     Indication: SEASONAL ALLERGY
  10. ALLEGRA [Concomitant]
     Indication: SEASONAL ALLERGY
  11. FOLIC ACID [Concomitant]
     Indication: PRODUCT USED FOR UNKNOWN INDICATION
     Dosage: 3MG DAILY
  12. PROTONIX [Concomitant]
     Indication: PRODUCT USED FOR UNKNOWN INDICATION
     Dosage: 40MG DAILY
  13. WOMEN^S MULTIVITAMIN [Concomitant]
     Indication: PRODUCT USED FOR UNKNOWN INDICATION
  14. CALTRATE [Concomitant]
     Indication: PRODUCT USED FOR UNKNOWN INDICATION
  15. VITAMIN D [Concomitant]
     Indication: PRODUCT USED FOR UNKNOWN INDICATION
  16. FISH OIL [Concomitant]
     Indication: VITAMIN SUPPLEMENTATION

REACTIONS (6)
  - Fatigue [Recovering/Resolving]
  - Injection site pain [Recovering/Resolving]
  - Swelling [Recovering/Resolving]
  - Pain [Recovering/Resolving]
  - Local swelling [Recovering/Resolving]
  - Local swelling [Recovering/Resolving]
